FAERS Safety Report 7967105-X (Version None)
Quarter: 2011Q4

REPORT INFORMATION
  Report Type: 
  Country: None (occurrence: None)
  Receive Date: 20111209
  Receipt Date: 20111205
  Transmission Date: 20120403
  Serious: No
  Sender: FDA-Public Use
  Company Number: CA-PFIZER INC-2011286659

PATIENT
  Age: 65 Year
  Sex: Male

DRUGS (3)
  1. LOTEMAX [Concomitant]
     Dosage: 1 GTT, 2X/WEEK
  2. XALATAN [Suspect]
     Indication: GLAUCOMA
     Dosage: 1 GTT, 1X/DAY IN LEFT EYE
     Route: 047
     Dates: start: 20100101
  3. DORZOLAMIDE HYDROCHLORIDE AND TIMOLOL MALEATE [Concomitant]
     Dosage: 1 GTT, 2X/DAY

REACTIONS (3)
  - OCULAR HYPERAEMIA [None]
  - FEELING ABNORMAL [None]
  - EYE IRRITATION [None]
